FAERS Safety Report 8034178-8 (Version None)
Quarter: 2012Q1

REPORT INFORMATION
  Report Type: 
  Country: None (occurrence: None)
  Receive Date: 20120110
  Receipt Date: 20120105
  Transmission Date: 20120608
  Serious: Yes (Hospitalization)
  Sender: FDA-Public Use
  Company Number: GB-ABBOTT-12P-167-0890014-00

PATIENT
  Sex: Female

DRUGS (3)
  1. ATAZANAVIR [Concomitant]
     Indication: PRODUCT USED FOR UNKNOWN INDICATION
  2. COMBIVIR [Concomitant]
     Indication: PRODUCT USED FOR UNKNOWN INDICATION
  3. NORVIR [Suspect]
     Indication: SUPPLEMENTATION THERAPY

REACTIONS (2)
  - INTENSIVE CARE [None]
  - INCORRECT ROUTE OF DRUG ADMINISTRATION [None]
